FAERS Safety Report 7637209-X (Version None)
Quarter: 2011Q3

REPORT INFORMATION
  Report Type: 
  Country: None (occurrence: None)
  Receive Date: 20110726
  Receipt Date: 20110721
  Transmission Date: 20111222
  Serious: Yes (Hospitalization)
  Sender: FDA-Public Use
  Company Number: PHHO2011FR12572

PATIENT
  Sex: Male

DRUGS (16)
  1. CELLCEPT [Suspect]
     Indication: RENAL TRANSPLANT
     Dosage: 1 MG, BID
     Route: 048
     Dates: start: 20110618
  2. ASPIRIN [Concomitant]
  3. LEVOTHYROXINE SODIUM [Concomitant]
  4. CALCIUM CARBONATE [Concomitant]
  5. VALGANCICLOVIR [Concomitant]
  6. SECTRAL [Concomitant]
  7. PRAMIPEXOLE DIHYCHLLORIDE [Concomitant]
  8. XATRAL                                  /FRA/ [Concomitant]
  9. BACTRIM [Concomitant]
  10. ESCITALOPRAM [Concomitant]
  11. AMLODIPINE BESYLATE [Concomitant]
  12. FORLAX [Concomitant]
  13. CYCLOSPORINE [Suspect]
     Indication: RENAL TRANSPLANT
     Dosage: 2.25 MG, BID
     Route: 048
     Dates: start: 20110623
  14. RANITIDINE HCL [Concomitant]
  15. PREDNISONE [Concomitant]
  16. PRAZEPAM [Concomitant]

REACTIONS (2)
  - PANCYTOPENIA [None]
  - OEDEMA PERIPHERAL [None]
